FAERS Safety Report 4539380-5 (Version None)
Quarter: 2004Q4

REPORT INFORMATION
  Report Type: 
  Country: None (occurrence: None)
  Receive Date: 20041222
  Receipt Date: 20041209
  Transmission Date: 20050328
  Serious: Yes (Hospitalization)
  Sender: FDA-Public Use
  Company Number: 2004AP06281

PATIENT
  Age: 50 Year
  Sex: Male
  Weight: 64.5 kg

DRUGS (6)
  1. IRESSA [Suspect]
     Indication: NEOPLASM MALIGNANT
     Dosage: 250 MG DAILY PO
     Route: 048
     Dates: start: 20041101
  2. CISPLATIN [Suspect]
     Indication: NEOPLASM MALIGNANT
     Dosage: 40 MG/M2 WEEK IV
     Route: 042
     Dates: start: 20041102
  3. RADIOTHERAPY [Suspect]
     Indication: NEOPLASM MALIGNANT
     Dosage: 2 GY DAILY
     Dates: start: 20041102
  4. IBUPROFEN [Concomitant]
  5. LIDOCAINE [Concomitant]
  6. ALQUEN [Concomitant]

REACTIONS (2)
  - FEBRILE NEUTROPENIA [None]
  - MUCOSAL INFLAMMATION [None]
